FAERS Safety Report 7209533-6 (Version None)
Quarter: 2011Q1

REPORT INFORMATION
  Report Type: 
  Country: None (occurrence: None)
  Receive Date: 20110104
  Receipt Date: 20101230
  Transmission Date: 20110831
  Serious: Yes (Other)
  Sender: FDA-Public Use
  Company Number: US-AMGEN-USASP2010008964

PATIENT

DRUGS (4)
  1. PREDNISONE [Concomitant]
     Indication: THROMBOCYTOPENIA
     Dosage: 40 MG, QD
  2. NPLATE [Suspect]
     Indication: THROMBOCYTOPENIA
     Dosage: 6.8 A?G, UNK
     Dates: start: 20100804, end: 20101119
  3. DEXAMETHASONE [Concomitant]
     Dosage: 40 MG, QD
     Route: 042
     Dates: start: 20101201, end: 20101201
  4. CORTICOSTEROIDS [Concomitant]
     Indication: THROMBOCYTOPENIA
     Dosage: UNK

REACTIONS (5)
  - BACK DISORDER [None]
  - PURPURA [None]
  - THERAPEUTIC RESPONSE DECREASED [None]
  - DRUG INEFFECTIVE [None]
  - PETECHIAE [None]
